FAERS Safety Report 6073701-X (Version None)
Quarter: 2009Q1

REPORT INFORMATION
  Report Type: 
  Country: None (occurrence: None)
  Receive Date: 20090211
  Receipt Date: 20090204
  Transmission Date: 20090719
  Serious: Yes (Hospitalization)
  Sender: FDA-Public Use
  Company Number: US-ELI_LILLY_AND_COMPANY-US200902000798

PATIENT
  Sex: Female

DRUGS (2)
  1. HUMALOG [Suspect]
     Indication: TYPE 2 DIABETES MELLITUS
  2. LANTUS [Concomitant]

REACTIONS (2)
  - DEHYDRATION [None]
  - RENAL DISORDER [None]
